FAERS Safety Report 9423601 (Version 1)
Quarter: 2013Q3

REPORT INFORMATION
  Report Type: Spontaneous
  Country: ES (occurrence: ES)
  Receive Date: 20130726
  Receipt Date: 20130726
  Transmission Date: 20140515
  Serious: Yes (Other)
  Sender: FDA-Public Use
  Company Number: ES-009507513-1307ESP011606

PATIENT
  Age: 68 Year
  Sex: Female

DRUGS (2)
  1. ALENDRONATE SODIUM [Suspect]
     Indication: OSTEOPOROSIS
     Dosage: UNK
     Route: 048
  2. CALCIUM (UNSPECIFIED) [Suspect]
     Indication: OSTEOPOROSIS
     Route: 048

REACTIONS (3)
  - Osteonecrosis of jaw [Unknown]
  - Sequestrectomy [Unknown]
  - Bone debridement [Unknown]
